FAERS Safety Report 22065440 (Version 1)
Quarter: 2023Q1

REPORT INFORMATION
  Report Type: Spontaneous
  Country: US (occurrence: US)
  Receive Date: 20230306
  Receipt Date: 20230306
  Transmission Date: 20230417
  Serious: Yes (Other)
  Sender: FDA-Public Use
  Company Number: US-BAYER-2023A025514

PATIENT
  Age: 64 Year
  Sex: Female

DRUGS (6)
  1. ASPIRIN [Suspect]
     Active Substance: ASPIRIN
  2. TICAGRELOR [Suspect]
     Active Substance: TICAGRELOR
  3. LOSARTAN [Suspect]
     Active Substance: LOSARTAN
  4. METOPROLOL [Suspect]
     Active Substance: METOPROLOL
  5. EZETIMIBE [Suspect]
     Active Substance: EZETIMIBE
  6. ROSUVASTATIN [Suspect]
     Active Substance: ROSUVASTATIN

REACTIONS (3)
  - Myopathy [None]
  - Rhabdomyolysis [None]
  - Haematuria [None]
